FAERS Safety Report 7623509-6 (Version None)
Quarter: 2011Q3

REPORT INFORMATION
  Report Type: 
  Country: None (occurrence: None)
  Receive Date: 20110720
  Receipt Date: 20110712
  Transmission Date: 20111222
  Serious: Yes (Hospitalization)
  Sender: FDA-Public Use
  Company Number: GB-JNJFOC-20090607891

PATIENT
  Age: 24 Year
  Sex: Female

DRUGS (5)
  1. MIRTAZAPINE [Concomitant]
     Indication: DEPRESSION
  2. RISPERIDONE [Suspect]
     Indication: PSYCHOTIC DISORDER
     Route: 065
  3. LAMOTRIGINE [Suspect]
     Indication: PSYCHOTIC DISORDER
     Route: 065
  4. LAMOTRIGINE [Suspect]
     Dosage: ORAL, 2/1 DAY
     Route: 065
     Dates: start: 20070301, end: 20070301
  5. MIRTAZAPINE [Concomitant]
     Indication: PSYCHOTIC DISORDER

REACTIONS (2)
  - OVERDOSE [None]
  - PANCREATITIS ACUTE [None]
